FAERS Safety Report 17023088 (Version 2)
Quarter: 2019Q4

REPORT INFORMATION
  Report Type: Spontaneous
  Country: US (occurrence: US)
  Receive Date: 20191112
  Receipt Date: 20191213
  Transmission Date: 20200122
  Serious: No
  Sender: FDA-Public Use
  Company Number: US-VIFOR (INTERNATIONAL) INC.-VIT-2019-11004

PATIENT
  Sex: Female

DRUGS (5)
  1. VELTASSA [Suspect]
     Active Substance: PATIROMER
     Route: 048
     Dates: start: 2019
  2. VELTASSA [Suspect]
     Active Substance: PATIROMER
     Indication: PRODUCT USED FOR UNKNOWN INDICATION
     Route: 048
     Dates: start: 2019
  3. INSULIN [Concomitant]
     Active Substance: INSULIN NOS
  4. FUROSEMIDE. [Concomitant]
     Active Substance: FUROSEMIDE
  5. VELTASSA [Suspect]
     Active Substance: PATIROMER
     Route: 048
     Dates: start: 2019

REACTIONS (5)
  - Diarrhoea [Recovered/Resolved]
  - Therapeutic product effect variable [Unknown]
  - Off label use [Unknown]
  - Blood potassium increased [Recovered/Resolved]
  - Product taste abnormal [Unknown]

NARRATIVE: CASE EVENT DATE: 2019
